FAERS Safety Report 4664372-5 (Version None)
Quarter: 2005Q2

REPORT INFORMATION
  Report Type: 
  Country: None (occurrence: None)
  Receive Date: 20050518
  Receipt Date: 20050516
  Transmission Date: 20051028
  Serious: Yes (Hospitalization)
  Sender: FDA-Public Use
  Company Number: FR-MERCK-0505FRA00063

PATIENT
  Age: 75 Year
  Sex: Female

DRUGS (2)
  1. COZAAR [Suspect]
     Indication: HYPERTENSION
     Route: 048
  2. PIROXICAM [Suspect]
     Indication: OSTEOARTHRITIS
     Route: 048

REACTIONS (2)
  - RENAL ARTERY STENOSIS [None]
  - RENAL FAILURE ACUTE [None]
